FAERS Safety Report 11054840 (Version 3)
Quarter: 2015Q2

REPORT INFORMATION
  Report Type: Spontaneous
  Country: US (occurrence: None)
  Receive Date: 20150420
  Receipt Date: 20150506
  Transmission Date: 20150821
  Serious: Yes (Hospitalization, Other)
  Sender: FDA-Public Use
  Company Number: ADR-2014-02004

PATIENT
  Age: 58 Year
  Sex: Male

DRUGS (5)
  1. BACLOFEN. [Suspect]
     Active Substance: BACLOFEN
     Route: 048
  2. LIORESAL [Suspect]
     Active Substance: BACLOFEN
     Indication: MUSCLE SPASTICITY
     Dates: start: 20141008
  3. CLONAZEPAM. [Suspect]
     Active Substance: CLONAZEPAM
     Route: 048
  4. COMPOUNDED BACLOFEN INTRATHECAL [Suspect]
     Active Substance: BACLOFEN
     Indication: MUSCLE SPASTICITY
  5. SEROQUEL [Suspect]
     Active Substance: QUETIAPINE FUMARATE
     Route: 048

REACTIONS (18)
  - Device dislocation [None]
  - Wound [None]
  - Irritability [None]
  - Tremor [None]
  - Muscle spasms [None]
  - Muscle spasticity [None]
  - Psychotic disorder [None]
  - Condition aggravated [None]
  - Pyrexia [None]
  - Muscle twitching [None]
  - Infusion site granuloma [None]
  - Mental status changes [None]
  - Pruritus [None]
  - No therapeutic response [None]
  - Hypomania [None]
  - Hallucination [None]
  - Pain [None]
  - CSF red blood cell count positive [None]
